FAERS Safety Report 8461458-4 (Version None)
Quarter: 2012Q2

REPORT INFORMATION
  Report Type: 
  Country: None (occurrence: None)
  Receive Date: 20120625
  Receipt Date: 20120611
  Transmission Date: 20120825
  Serious: Yes (Death, Hospitalization)
  Sender: FDA-Public Use
  Company Number: DE-RANBAXY-2009RR-28213

PATIENT
  Age: 81 Year
  Sex: Female
  Weight: 72 kg

DRUGS (16)
  1. ASPIRIN [Suspect]
     Indication: CORONARY ARTERY DISEASE
     Dosage: 100 MG, QD
     Route: 048
     Dates: start: 19950101, end: 20080909
  2. VOLTAREN [Suspect]
     Indication: ARTHRITIS
     Dosage: 75 MG, BID
     Route: 048
     Dates: start: 20080501, end: 20080601
  3. ALENDRONATE SODIUM [Concomitant]
     Indication: OSTEOPOROSIS
     Dosage: 70 MG, QD
     Route: 048
     Dates: start: 20080601
  4. MOXONIDINE [Concomitant]
     Indication: HYPERTENSION
     Dosage: 0.2 MG, BID
     Route: 048
     Dates: start: 19900101
  5. PREDNISOLONE [Concomitant]
     Indication: ARTHRITIS
     Dosage: UNK
     Route: 048
     Dates: start: 20080501, end: 20080601
  6. COTRIM [Suspect]
     Indication: URINARY TRACT INFECTION
     Dosage: 960 MG, BID
     Route: 048
     Dates: start: 20080824, end: 20080827
  7. FOSINOPRIL SODIUM [Concomitant]
     Indication: HYPERTENSION
     Dosage: 20 MG, QD
     Route: 048
     Dates: start: 20080501
  8. PRAVABETA [Concomitant]
     Indication: DYSLIPIDAEMIA
     Dosage: 20 MG, QD
     Route: 048
     Dates: start: 20020101
  9. VERAPAMIL [Concomitant]
     Indication: CORONARY ARTERY DISEASE
     Dosage: 80 MG, BID
     Route: 048
     Dates: start: 19900101
  10. PANTOPRAZOLE [Suspect]
     Indication: PROPHYLAXIS AGAINST GASTROINTESTINAL ULCER
     Dosage: 20 MG, QD
     Route: 048
     Dates: start: 20080820
  11. ARELIX [Concomitant]
     Indication: HYPERTENSION
     Dosage: 6 MG, QD
     Route: 048
     Dates: start: 19950101
  12. OXYCODONE HYDROCHLORIDE [Concomitant]
     Indication: PAIN
     Dosage: 40 MG, BID
     Route: 048
     Dates: start: 20080601
  13. ACETAMINOPHEN [Concomitant]
     Indication: PAIN
     Dosage: 500 MG, TID
     Route: 048
     Dates: start: 20080601, end: 20080918
  14. LISINOPRIL [Concomitant]
     Indication: HYPERTENSION
     Dosage: 100 MG, BID
     Route: 048
     Dates: start: 20080501
  15. CALCILAC KT [Concomitant]
     Indication: OSTEOPOROSIS
     Dosage: 1 DF, QD
     Route: 048
     Dates: start: 20080601
  16. CIPROFLOXACIN [Suspect]
     Indication: URINARY TRACT INFECTION
     Dosage: 500 MG, BID
     Route: 048
     Dates: start: 20080820, end: 20080823

REACTIONS (2)
  - DRUG INTERACTION [None]
  - PSEUDOMEMBRANOUS COLITIS [None]
